FAERS Safety Report 7499349-8 (Version None)
Quarter: 2011Q2

REPORT INFORMATION
  Report Type: 
  Country: None (occurrence: None)
  Receive Date: 20110524
  Receipt Date: 20110512
  Transmission Date: 20111010
  Serious: Yes (Other)
  Sender: FDA-Public Use
  Company Number: ES-SOLVAY-00311003926

PATIENT
  Age: 24 Year
  Sex: Male

DRUGS (2)
  1. CREON [Suspect]
     Indication: CYSTIC FIBROSIS
     Dosage: KREON 25000: DAILY DOSE:  UNKNOWN
     Route: 048
     Dates: end: 20110101
  2. CREON [Suspect]
     Dosage: KREON 10000: DAILY DOSE:  UNKNOWN
     Route: 048
     Dates: start: 20110101

REACTIONS (3)
  - DRUG INEFFECTIVE [None]
  - ABDOMINAL PAIN [None]
  - DIARRHOEA [None]
